FAERS Safety Report 9435174 (Version 1)
Quarter: 2013Q3

REPORT INFORMATION
  Report Type: Spontaneous
  Country: US (occurrence: US)
  Receive Date: 20130801
  Receipt Date: 20130801
  Transmission Date: 20140515
  Serious: No
  Sender: FDA-Public Use
  Company Number: US-009507513-1307USA016674

PATIENT
  Sex: Female
  Weight: 62.13 kg

DRUGS (1)
  1. MIRALAX [Suspect]
     Indication: GASTROINTESTINAL PAIN
     Dosage: 5.67 G, QOD
     Route: 048
     Dates: start: 2006

REACTIONS (3)
  - Incorrect drug administration duration [Unknown]
  - Underdose [Unknown]
  - Inappropriate schedule of drug administration [Unknown]
